FAERS Safety Report 8170589-8 (Version None)
Quarter: 2012Q1

REPORT INFORMATION
  Report Type: 
  Country: None (occurrence: None)
  Receive Date: 20120228
  Receipt Date: 20120222
  Transmission Date: 20120608
  Serious: Yes (Hospitalization)
  Sender: FDA-Public Use
  Company Number: DE-ROCHE-1042499

PATIENT
  Sex: Female
  Weight: 161 kg

DRUGS (8)
  1. METOPROLOL TARTRATE [Concomitant]
     Dates: start: 20120114
  2. VINORELBINE TARTRATE [Suspect]
     Indication: BREAST CANCER
     Dosage: RECENT DOSE ON 08/FEB/2012
     Dates: start: 20120208
  3. XELODA [Suspect]
     Indication: BREAST CANCER
     Dates: start: 20120208
  4. OMEPRAZOLE [Concomitant]
     Dates: start: 20120214
  5. AVASTIN [Suspect]
     Indication: BREAST CANCER
     Dosage: RECENT DOSE ON 8 FEB 2012
     Dates: start: 20120208
  6. RAMIPRIL [Concomitant]
     Dates: start: 20120214
  7. OXAZEPAM [Concomitant]
     Dates: start: 20120101
  8. METOCLOPRAMIDE [Concomitant]

REACTIONS (2)
  - GENERAL PHYSICAL HEALTH DETERIORATION [None]
  - LEUKOPENIA [None]
